FAERS Safety Report 8462455-5 (Version None)
Quarter: 2012Q2

REPORT INFORMATION
  Report Type: 
  Country: None (occurrence: None)
  Receive Date: 20120625
  Receipt Date: 20120613
  Transmission Date: 20120825
  Serious: Yes (Other)
  Sender: FDA-Public Use
  Company Number: JP-VERTEX PHARMACEUTICALS INC.-AE-2012-008915

PATIENT
  Age: 60 Year
  Sex: Male

DRUGS (10)
  1. INCIVEK [Suspect]
     Route: 048
     Dates: start: 20120515, end: 20120518
  2. REBETOL [Concomitant]
     Indication: HEPATITIS C
     Route: 048
     Dates: start: 20120413, end: 20120510
  3. PEG-INTRON [Concomitant]
     Route: 048
     Dates: start: 20120511, end: 20120518
  4. EQUA [Concomitant]
     Route: 048
  5. INCIVEK [Suspect]
     Indication: HEPATITIS C
     Route: 048
     Dates: start: 20120414, end: 20120514
  6. REBETOL [Concomitant]
     Route: 048
     Dates: start: 20120511, end: 20120518
  7. URDENACIN [Concomitant]
     Route: 048
  8. LENDORMIN [Concomitant]
     Route: 048
  9. PEG-INTRON [Concomitant]
     Indication: HEPATITIS C
     Route: 058
     Dates: start: 20120413, end: 20120504
  10. REZALTAS [Concomitant]
     Route: 048

REACTIONS (4)
  - BLOOD CREATININE INCREASED [None]
  - BLOOD URIC ACID INCREASED [None]
  - HAEMOGLOBIN DECREASED [None]
  - BLOOD UREA INCREASED [None]
